FAERS Safety Report 7328749-1 (Version None)
Quarter: 2011Q1

REPORT INFORMATION
  Report Type: 
  Country: None (occurrence: None)
  Receive Date: 20110303
  Receipt Date: 20110218
  Transmission Date: 20110831
  Serious: Yes (Hospitalization)
  Sender: FDA-Public Use
  Company Number: PHHY2011US14366

PATIENT
  Sex: Female

DRUGS (1)
  1. RECLAST [Suspect]
     Dosage: 5 MG
     Route: 042
     Dates: start: 20110114

REACTIONS (4)
  - UPPER LIMB FRACTURE [None]
  - CONVULSION [None]
  - JOINT DISLOCATION [None]
  - PYREXIA [None]
